FAERS Safety Report 19431988 (Version 1)
Quarter: 2021Q2

REPORT INFORMATION
  Report Type: Spontaneous
  Country: FR (occurrence: FR)
  Receive Date: 20210617
  Receipt Date: 20210617
  Transmission Date: 20210717
  Serious: Yes (Other)
  Sender: FDA-Public Use
  Company Number: FR-PFIZER INC-2021653206

PATIENT
  Age: 63 Year
  Sex: Female
  Weight: 61 kg

DRUGS (11)
  1. PACLITAXEL. [Suspect]
     Active Substance: PACLITAXEL
     Dosage: 326 MG MONTHLY ? 14 DOSES ON DAY 1, D8, D15 (28 DAYS CYCLES)
     Route: 042
     Dates: start: 20170629, end: 20171205
  2. PACLITAXEL. [Suspect]
     Active Substance: PACLITAXEL
     Indication: OVARIAN CANCER RECURRENT
     Dosage: 280 MG, EVERY 3 WEEKS (6 CYCLES)
     Route: 042
     Dates: start: 20140808, end: 20141114
  3. CARBOPLATIN. [Suspect]
     Active Substance: CARBOPLATIN
     Dosage: 440 MG, EVERY 3 WEEKS (4 CYCLES)
     Route: 042
     Dates: start: 20200917, end: 20201210
  4. CAELYX [Suspect]
     Active Substance: DOXORUBICIN HYDROCHLORIDE
     Indication: OVARIAN CANCER RECURRENT
     Dosage: 48 MG EVERY 4 WKS;4 CYCLES
     Route: 042
     Dates: start: 20200917, end: 20201210
  5. GEMCITABINE HYDROCHLORIDE. [Suspect]
     Active Substance: GEMCITABINE HYDROCHLORIDE
     Indication: OVARIAN CANCER RECURRENT
     Dosage: 4000 MG, EVERY 3 WEEKS (7 CYCLES)
     Route: 042
     Dates: start: 20160211, end: 20160503
  6. LYNPARZA [Suspect]
     Active Substance: OLAPARIB
     Indication: OVARIAN CANCER RECURRENT
     Dosage: UNK
     Route: 048
     Dates: start: 201411, end: 201502
  7. LYNPARZA [Suspect]
     Active Substance: OLAPARIB
     Dosage: 400 MG IN THE MORNING AND IN THE EVENING, EVERYDAY
     Route: 048
     Dates: start: 201712, end: 202009
  8. AVASTIN [Suspect]
     Active Substance: BEVACIZUMAB
     Indication: OVARIAN CANCER RECURRENT
     Dosage: 945 MG, EVERY 3 WEEKS (23 CYCLES)
     Route: 042
     Dates: start: 20160211, end: 20170530
  9. CARBOPLATIN. [Suspect]
     Active Substance: CARBOPLATIN
     Indication: OVARIAN CANCER RECURRENT
     Dosage: 555 MG, EVERY 3 WEEKS (6 CYCLES)
     Route: 042
     Dates: start: 20140801, end: 20141114
  10. CARBOPLATIN. [Suspect]
     Active Substance: CARBOPLATIN
     Dosage: 520 MG, EVERY 3 WEEKS (4 CYCLES)
     Route: 042
     Dates: start: 20160211, end: 20160503
  11. CARBOPLATIN. [Suspect]
     Active Substance: CARBOPLATIN
     Dosage: 680 MG EVERY 4 WK;6 CYCLES
     Route: 042
     Dates: start: 20170629, end: 20171128

REACTIONS (2)
  - Second primary malignancy [Not Recovered/Not Resolved]
  - Myelodysplastic syndrome [Not Recovered/Not Resolved]

NARRATIVE: CASE EVENT DATE: 20210125
